FAERS Safety Report 12452603 (Version 1)
Quarter: 2016Q2

REPORT INFORMATION
  Report Type: Spontaneous
  Country: CH (occurrence: DE)
  Receive Date: 20160609
  Receipt Date: 20160609
  Transmission Date: 20160815
  Serious: Yes (Hospitalization)
  Sender: FDA-Public Use
  Company Number: CH-LPDUSPRD-20160476

PATIENT
  Age: 17 Year
  Sex: Female
  Weight: 50 kg

DRUGS (2)
  1. FERINJECT [Suspect]
     Active Substance: FERRIC CARBOXYMALTOSE
     Dosage: 50MG/250ML NACL
     Route: 041
     Dates: start: 20160205
  2. LEVONORGESTREL. [Concomitant]
     Active Substance: LEVONORGESTREL
     Dosage: DOSE NOT PROVIDED
     Route: 048

REACTIONS (4)
  - Extravasation [Recovered/Resolved]
  - Neuralgia [Recovered/Resolved]
  - Pain in extremity [Recovered/Resolved]
  - Product preparation error [Unknown]

NARRATIVE: CASE EVENT DATE: 201602
